FAERS Safety Report 4990334-4 (Version None)
Quarter: 2006Q2

REPORT INFORMATION
  Report Type: 
  Country: None (occurrence: None)
  Receive Date: 20060503
  Receipt Date: 20060424
  Transmission Date: 20061013
  Serious: Yes (Disabling)
  Sender: FDA-Public Use
  Company Number: 2006CG00748

PATIENT
  Age: 76 Year
  Sex: Female

DRUGS (3)
  1. ARIMIDEX [Suspect]
     Indication: BREAST CANCER
     Route: 048
     Dates: start: 20060201
  2. ESITROL [Concomitant]
  3. MEDIATENSYL [Concomitant]

REACTIONS (1)
  - SJOGREN'S SYNDROME [None]
